FAERS Safety Report 8581548-5 (Version None)
Quarter: 2012Q3

REPORT INFORMATION
  Report Type: 
  Country: None (occurrence: None)
  Receive Date: 20120809
  Receipt Date: 20120806
  Transmission Date: 20120928
  Serious: Yes (Other)
  Sender: FDA-Public Use
  Company Number: FR-GE HEALTHCARE MEDICAL DIAGNOSTICS-VISP-NO-1207S-0313

PATIENT
  Sex: Female
  Weight: 56.5 kg

DRUGS (2)
  1. VISIPAQUE [Suspect]
     Indication: PERIARTHRITIS
     Route: 014
     Dates: start: 20120706, end: 20120706
  2. ALTIM [Concomitant]

REACTIONS (7)
  - DECREASED APPETITE [None]
  - WEIGHT DECREASED [None]
  - HEADACHE [None]
  - FATIGUE [None]
  - DYSGEUSIA [None]
  - SALIVARY HYPERSECRETION [None]
  - NAUSEA [None]
